FAERS Safety Report 24546139 (Version 1)
Quarter: 2024Q4

REPORT INFORMATION
  Report Type: Spontaneous
  Country: US (occurrence: US)
  Receive Date: 20241024
  Receipt Date: 20241024
  Transmission Date: 20250114
  Serious: No
  Sender: UPSHER SMITH LABORATORIES
  Company Number: US-UPSHER-SMITH LABORATORIES, LLC-2024USL00247

PATIENT

DRUGS (3)
  1. JANTOVEN [Suspect]
     Active Substance: WARFARIN SODIUM
  2. HEPARIN [Suspect]
     Active Substance: HEPARIN SODIUM
  3. RIFAMPIN [Suspect]
     Active Substance: RIFAMPIN

REACTIONS (3)
  - Haemorrhage [Unknown]
  - Activated partial thromboplastin time prolonged [Unknown]
  - Drug ineffective [Unknown]

NARRATIVE: CASE EVENT DATE: 20240301
